FAERS Safety Report 10146907 (Version 1)
Quarter: 2014Q2

REPORT INFORMATION
  Report Type: Spontaneous
  Country: US (occurrence: None)
  Receive Date: 20140430
  Receipt Date: 20140430
  Transmission Date: 20141212
  Serious: Yes (Other)
  Sender: FDA-Public Use
  Company Number: None

PATIENT
  Sex: Female
  Weight: 67.3 kg

DRUGS (1)
  1. HUMIRA [Suspect]
     Indication: RHEUMATOID ARTHRITIS
     Dosage: 4/1/2014-4/28/2014 APPROX, 40MG, EVERY OTHERE WEEK, SUBQ
     Route: 058
     Dates: start: 20140401, end: 20140428

REACTIONS (1)
  - Hypersensitivity [None]
